FAERS Safety Report 19470251 (Version 1)
Quarter: 2021Q2

REPORT INFORMATION
  Report Type: Report from Study
  Country: US (occurrence: US)
  Receive Date: 20210628
  Receipt Date: 20210628
  Transmission Date: 20210717
  Serious: Yes (Death)
  Sender: FDA-Public Use
  Company Number: US-GLAXOSMITHKLINE-2018-TSO2022-US

PATIENT
  Age: 68 Year
  Sex: Female

DRUGS (5)
  1. COBOLIMAB. [Suspect]
     Active Substance: COBOLIMAB
     Indication: NON-SMALL CELL LUNG CANCER
     Dosage: 300 MG
     Route: 042
     Dates: start: 20180726, end: 20180726
  2. DOSTARLIMAB [Suspect]
     Active Substance: DOSTARLIMAB
     Indication: NON-SMALL CELL LUNG CANCER
     Dosage: 500 MG
     Route: 042
     Dates: start: 20180726, end: 20180726
  3. PREDNISONE. [Concomitant]
     Active Substance: PREDNISONE
     Indication: PNEUMONITIS
     Dosage: 30 MG, QD
     Dates: start: 20181121, end: 20181124
  4. COBOLIMAB. [Suspect]
     Active Substance: COBOLIMAB
     Dosage: 900 MG
     Route: 042
     Dates: start: 20180927, end: 20180927
  5. DOSTARLIMAB [Suspect]
     Active Substance: DOSTARLIMAB
     Dosage: 500 MG
     Route: 042
     Dates: start: 20180927, end: 20180927

REACTIONS (1)
  - Haemophagocytic lymphohistiocytosis [Fatal]

NARRATIVE: CASE EVENT DATE: 20181122
